FAERS Safety Report 4919205-6 (Version None)
Quarter: 2006Q1

REPORT INFORMATION
  Report Type: 
  Country: None (occurrence: None)
  Receive Date: 20060113
  Receipt Date: 20051205
  Transmission Date: 20060701
  Serious: No
  Sender: FDA-Public Use
  Company Number: 2005SP004266

PATIENT
  Age: 47 Year
  Sex: Male
  Weight: 97.5234 kg

DRUGS (3)
  1. LUNESTA [Suspect]
     Dosage: 3 MG;QOD
     Dates: start: 20051017
  2. COUMADIN [Concomitant]
  3. PERCOCET [Concomitant]

REACTIONS (5)
  - DRUG INEFFECTIVE [None]
  - INSOMNIA [None]
  - MYALGIA [None]
  - MYASTHENIC SYNDROME [None]
  - OEDEMA PERIPHERAL [None]
